FAERS Safety Report 20960597 (Version 1)
Quarter: 2022Q2

REPORT INFORMATION
  Report Type: Spontaneous
  Country: CA (occurrence: CA)
  Receive Date: 20220615
  Receipt Date: 20220615
  Transmission Date: 20220721
  Serious: Yes (Other)
  Sender: FDA-Public Use
  Company Number: CA-JNJFOC-20220618577

PATIENT
  Age: 48 Year
  Sex: Female
  Weight: 135 kg

DRUGS (3)
  1. REMICADE [Suspect]
     Active Substance: INFLIXIMAB
     Indication: Crohn^s disease
     Route: 041
  2. KEPPRA [Concomitant]
     Active Substance: LEVETIRACETAM
  3. VALPROATE SODIUM [Concomitant]
     Active Substance: VALPROATE SODIUM

REACTIONS (8)
  - Pyoderma gangrenosum [Unknown]
  - Anal fissure [Unknown]
  - Insomnia [Unknown]
  - Flushing [Unknown]
  - Arthralgia [Unknown]
  - Fatigue [Unknown]
  - Condition aggravated [Unknown]
  - Off label use [Unknown]
